FAERS Safety Report 20335894 (Version 2)
Quarter: 2022Q1

REPORT INFORMATION
  Report Type: Report from Study
  Country: FR (occurrence: FR)
  Receive Date: 20220114
  Receipt Date: 20220128
  Transmission Date: 20220424
  Serious: Yes (Other)
  Sender: FDA-Public Use
  Company Number: FR-PFIZER INC-202200006670

PATIENT
  Age: 82 Year
  Sex: Female
  Weight: 58 kg

DRUGS (6)
  1. PALBOCICLIB [Suspect]
     Active Substance: PALBOCICLIB
     Dosage: UNK
     Route: 048
     Dates: start: 20210314
  2. LETROZOLE [Suspect]
     Active Substance: LETROZOLE
     Dosage: UNK
     Route: 048
     Dates: start: 20210314
  3. DOLIPRANE [Concomitant]
     Active Substance: ACETAMINOPHEN
     Indication: Pulmonary embolism
     Dosage: UNK, AS NEEDED
     Route: 048
     Dates: start: 202012
  4. DENOSUMAB [Concomitant]
     Active Substance: DENOSUMAB
     Indication: Pulmonary embolism
     Dosage: 120 MG
     Route: 058
     Dates: start: 20210312
  5. PRAZEPAM [Concomitant]
     Active Substance: PRAZEPAM
     Indication: Anxiety
     Dosage: UNK, AS NEEDED
     Route: 048
  6. HERBALS\VITIS VINIFERA LEAF [Concomitant]
     Active Substance: HERBALS\VITIS VINIFERA LEAF
     Indication: Peripheral venous disease
     Dosage: UNK, AS NEEDED
     Route: 048

REACTIONS (1)
  - Pulmonary embolism [Recovered/Resolved]

NARRATIVE: CASE EVENT DATE: 20210830
